FAERS Safety Report 8230378-2 (Version None)
Quarter: 2012Q1

REPORT INFORMATION
  Report Type: 
  Country: None (occurrence: None)
  Receive Date: 20120323
  Receipt Date: 20120314
  Transmission Date: 20120608
  Serious: Yes (Other)
  Sender: FDA-Public Use
  Company Number: US-PURDUE-USA-2012-0080951

PATIENT
  Sex: Male
  Weight: 87.528 kg

DRUGS (4)
  1. OXYCONTIN [Suspect]
     Dosage: 20 MG, Q12H
     Route: 048
  2. OXYCODONE HCL [Suspect]
     Indication: BACK PAIN
     Dosage: 15 MG, Q6H
  3. VALIUM [Suspect]
     Indication: MUSCLE SPASMS
     Dosage: 10 MG, TID
  4. OXYCONTIN [Suspect]
     Indication: BACK PAIN
     Dosage: 40 MG, Q12H
     Route: 048

REACTIONS (3)
  - ROAD TRAFFIC ACCIDENT [None]
  - INGUINAL HERNIA [None]
  - LIMB INJURY [None]
